FAERS Safety Report 5214914-6 (Version None)
Quarter: 2007Q1

REPORT INFORMATION
  Report Type: 
  Country: None (occurrence: None)
  Receive Date: 20070122
  Receipt Date: 20070122
  Transmission Date: 20070707
  Serious: No
  Sender: FDA-Public Use
  Company Number: None

PATIENT
  Age: 27 Year
  Sex: Female
  Weight: 52.1637 kg

DRUGS (6)
  1. KENALOG-40 [Suspect]
     Indication: INTERVERTEBRAL DISC PROTRUSION
     Dosage: 2CC X2 EPIDURAL
     Route: 008
     Dates: start: 20060918, end: 20060918
  2. LIDOCAINE 1% [Suspect]
     Dosage: 2CC X2 EPIDURAL
     Route: 008
     Dates: start: 20061005, end: 20061005
  3. MOBIC [Concomitant]
  4. FISH OIL [Concomitant]
  5. MULTI-VITAMIN [Concomitant]
  6. MAGNESIUM [Concomitant]

REACTIONS (6)
  - ALOPECIA [None]
  - DERMATITIS ACNEIFORM [None]
  - DRUG EFFECT DECREASED [None]
  - HYPERSENSITIVITY [None]
  - NO THERAPEUTIC RESPONSE [None]
  - SCAR [None]
